FAERS Safety Report 23119118 (Version 4)
Quarter: 2023Q4

REPORT INFORMATION
  Report Type: Spontaneous
  Country: CN (occurrence: CN)
  Receive Date: 20231028
  Receipt Date: 20231130
  Transmission Date: 20240109
  Serious: Yes (Hospitalization, Other)
  Sender: FDA-Public Use
  Company Number: CN-drreddys-LIT/CHN/23/0180560

PATIENT
  Age: 19 Year
  Sex: Female
  Weight: 47 kg

DRUGS (17)
  1. OLANZAPINE [Suspect]
     Active Substance: OLANZAPINE
     Indication: Schizophrenia
     Route: 048
     Dates: start: 20220920, end: 20220924
  2. OLANZAPINE [Suspect]
     Active Substance: OLANZAPINE
     Route: 048
     Dates: start: 20220924, end: 20221013
  3. OLANZAPINE [Suspect]
     Active Substance: OLANZAPINE
     Route: 048
     Dates: start: 20221013, end: 20221027
  4. AMISULPRIDE [Suspect]
     Active Substance: AMISULPRIDE
     Indication: Psychiatric symptom
     Route: 048
     Dates: start: 20220920, end: 20230929
  5. AMISULPRIDE [Suspect]
     Active Substance: AMISULPRIDE
     Indication: Schizophrenia
     Route: 048
     Dates: start: 20220929, end: 20221011
  6. AMISULPRIDE [Suspect]
     Active Substance: AMISULPRIDE
     Dosage: REDUCED AND DISCONTINUED
     Route: 048
     Dates: start: 20221012, end: 20221018
  7. RISPERIDONE [Concomitant]
     Active Substance: RISPERIDONE
     Indication: Psychiatric symptom
     Dosage: SOLUTION
     Route: 048
     Dates: start: 202203, end: 20220922
  8. RISPERIDONE [Concomitant]
     Active Substance: RISPERIDONE
     Dates: start: 20190924, end: 2022
  9. ARIPIPRAZOLE [Concomitant]
     Active Substance: ARIPIPRAZOLE
     Indication: Psychiatric symptom
     Route: 048
     Dates: start: 20220919, end: 20230920
  10. ARIPIPRAZOLE [Concomitant]
     Active Substance: ARIPIPRAZOLE
     Route: 048
     Dates: start: 20220924
  11. ARIPIPRAZOLE [Concomitant]
     Active Substance: ARIPIPRAZOLE
     Dates: start: 202203, end: 20220927
  12. ZOPICLONE [Concomitant]
     Active Substance: ZOPICLONE
     Indication: Sleep disorder
     Route: 048
     Dates: start: 20220929, end: 20221012
  13. BLONANSERIN [Concomitant]
     Active Substance: BLONANSERIN
     Indication: Psychiatric symptom
     Route: 048
     Dates: start: 20221013, end: 20221015
  14. BLONANSERIN [Concomitant]
     Active Substance: BLONANSERIN
     Route: 048
     Dates: start: 20221016, end: 20221019
  15. BLONANSERIN [Concomitant]
     Active Substance: BLONANSERIN
     Route: 048
     Dates: start: 20221020, end: 20221022
  16. BLONANSERIN [Concomitant]
     Active Substance: BLONANSERIN
     Route: 048
     Dates: start: 20221023, end: 20221026
  17. BLONANSERIN [Concomitant]
     Active Substance: BLONANSERIN
     Route: 048
     Dates: start: 20221027

REACTIONS (4)
  - Hypotension [Recovered/Resolved]
  - Antipsychotic drug level above therapeutic [Recovered/Resolved]
  - Hallucination, auditory [Unknown]
  - Sedation complication [Recovering/Resolving]

NARRATIVE: CASE EVENT DATE: 20221009
